FAERS Safety Report 4881997-2 (Version None)
Quarter: 2006Q1

REPORT INFORMATION
  Report Type: 
  Country: None (occurrence: None)
  Receive Date: 20060112
  Receipt Date: 20051229
  Transmission Date: 20060701
  Serious: Yes (Hospitalization)
  Sender: FDA-Public Use
  Company Number: 2005S1010296

PATIENT
  Age: 89 Year
  Sex: Male
  Weight: 77.1115 kg

DRUGS (21)
  1. FENTANYL TRANSDERMAL SYSTEM [Suspect]
     Indication: SPINAL COMPRESSION FRACTURE
     Dosage: 100 MCG/HR;UNKNOWN;TDER
     Dates: end: 20050904
  2. GLYCERYL TRINITRATE [Concomitant]
  3. DIGOXIN [Concomitant]
  4. TORSEMIDE [Concomitant]
  5. POTASSIUM CHLORIDE [Concomitant]
  6. ISOSORBIDE MONONITRATE [Concomitant]
  7. RAMIPRIL [Concomitant]
  8. ASPIRIN [Concomitant]
  9. MESALAMINE [Concomitant]
  10. GUAIFENESIN [Concomitant]
  11. TAMSULOSIN HCL [Concomitant]
  12. BISOPROLOL FUMARATE [Concomitant]
  13. SALBUTAMOL [Concomitant]
  14. FERROUS SULFATE EXSICCATED [Concomitant]
  15. CYANOCOBALAMIN-TANIN COMPLEX [Concomitant]
  16. ASCORBIC ACID/TOCOPHERYL ACETATE/RETINOL/ZINC [Concomitant]
  17. CALCIUM/VITAMINS NOS/MINERALS NOS/VITAMIN B NOS [Concomitant]
  18. CALCIUM CITRATE W/COLECALCIFEROL [Concomitant]
  19. ALENDRONATE SODIUM [Concomitant]
  20. SENNA [Concomitant]
  21. OXYGEN [Concomitant]

REACTIONS (8)
  - ASTHENIA [None]
  - COGNITIVE DISORDER [None]
  - DRUG EFFECT INCREASED [None]
  - DYSARTHRIA [None]
  - INCORRECT DOSE ADMINISTERED [None]
  - MYOCARDIAL INFARCTION [None]
  - SCREAMING [None]
  - SOMNOLENCE [None]
